FAERS Safety Report 8589820-X (Version None)
Quarter: 2012Q3

REPORT INFORMATION
  Report Type: 
  Country: None (occurrence: None)
  Receive Date: 20120813
  Receipt Date: 20120718
  Transmission Date: 20120928
  Serious: No
  Sender: FDA-Public Use
  Company Number: US-009507513-2012SP010309

PATIENT

DRUGS (3)
  1. MIRALAX [Suspect]
     Indication: MEDICAL OBSERVATION
  2. MIRALAX [Suspect]
     Indication: POLYP
  3. MIRALAX [Suspect]
     Indication: FUNCTIONAL GASTROINTESTINAL DISORDER
     Dosage: 17 G, QD
     Route: 048
     Dates: start: 20090101

REACTIONS (4)
  - OFF LABEL USE [None]
  - FOREIGN BODY [None]
  - GLOSSODYNIA [None]
  - INCORRECT DRUG ADMINISTRATION DURATION [None]
